FAERS Safety Report 7253775-0 (Version None)
Quarter: 2011Q1

REPORT INFORMATION
  Report Type: 
  Country: None (occurrence: None)
  Receive Date: 20110129
  Receipt Date: 20100202
  Transmission Date: 20110831
  Serious: No
  Sender: FDA-Public Use
  Company Number: US-ABBOTT-10P-163-0624009-00

PATIENT
  Sex: Female

DRUGS (1)
  1. HUMIRA [Suspect]
     Indication: RHEUMATOID ARTHRITIS
     Dates: start: 20061218, end: 20091201

REACTIONS (4)
  - OPEN WOUND [None]
  - ARTHRALGIA [None]
  - PYREXIA [None]
  - MUSCLE SPASMS [None]
